FAERS Safety Report 7408124-1 (Version None)
Quarter: 2011Q2

REPORT INFORMATION
  Report Type: 
  Country: None (occurrence: None)
  Receive Date: 20110412
  Receipt Date: 20110406
  Transmission Date: 20111010
  Serious: Yes (Life-Threatening, Hospitalization, Other)
  Sender: FDA-Public Use
  Company Number: KR-BAYER-2011-009896

PATIENT
  Age: 48 Year
  Sex: Male

DRUGS (117)
  1. GASMOTIN [Concomitant]
     Dosage: 5 MG, TID
     Route: 048
     Dates: start: 20101221, end: 20101229
  2. LEVOVIR [Concomitant]
     Indication: HEPATITIS B
     Dosage: 30 MG, QD
     Route: 048
     Dates: start: 20101207, end: 20101214
  3. MULTI-VITAMINS [Concomitant]
     Dosage: 1 DF, QD
     Route: 048
     Dates: start: 20101221, end: 20110128
  4. LAMINA-G [Concomitant]
     Indication: OESOPHAGITIS
     Dosage: 40 ML, TID
     Route: 048
     Dates: start: 20101209, end: 20101214
  5. TYLENOL EXTENDED RELIEF [Concomitant]
     Indication: HEADACHE
     Dosage: 1300 MG, QD
     Route: 048
     Dates: start: 20101212, end: 20101213
  6. MIDAZOLAM [Concomitant]
     Indication: SURGERY
     Dosage: 3 MG, QD
     Route: 030
     Dates: start: 20101215, end: 20101215
  7. ESMERON [Concomitant]
     Indication: SURGERY
     Dosage: 50 MG, QD
     Route: 042
     Dates: start: 20101215, end: 20101215
  8. DIPEPTIVEN [Concomitant]
     Indication: MEDICAL DIET
     Dosage: 100 ML, QD
     Route: 042
     Dates: start: 20101216, end: 20101216
  9. NUTRIFLEX LIPID [AMINO ACIDS NOS,CARBOHYDRATES NOS,ELECTROLYTES NOS,LI [Concomitant]
     Indication: MEDICAL DIET
     Dosage: 1.250 ML, QD
     Route: 042
     Dates: start: 20101220, end: 20101220
  10. ULTRAVIST 150 [Concomitant]
     Dosage: 140 ML, QD
     Route: 042
     Dates: start: 20110215, end: 20110215
  11. LIVACT [AMINO ACIDS NOS] [Concomitant]
     Dosage: 4.15 G, TID
     Route: 048
     Dates: start: 20110113, end: 20110126
  12. NORVASC [Concomitant]
     Indication: PROPHYLAXIS
     Dosage: 5 MG, QD
     Route: 048
     Dates: start: 20110106, end: 20110110
  13. ALBUMIN (HUMAN) [Concomitant]
     Indication: HYPOALBUMINAEMIA
     Dosage: 100 ML, QD
     Route: 042
     Dates: start: 20110129, end: 20110129
  14. DILATREND [Concomitant]
     Indication: HYPERTENSION
     Dosage: 12.5 MG, UNK
     Dates: start: 20110207
  15. HEPATAMINE [Concomitant]
     Indication: MEDICAL DIET
     Dosage: 500 ML, QD
     Route: 042
     Dates: start: 20110215
  16. MEK INHIBITOR (DIHYDROXYPROP-DIFLU-METHOXYPHEN-CYCLOPROPA-SULFAMI) [Suspect]
     Dosage: 50 MG, BID
     Route: 048
     Dates: start: 20101231, end: 20110128
  17. SORAFENIB (RAF KINASE INHIBITOR) [Suspect]
     Dosage: 400 MG, QD
     Route: 048
     Dates: start: 20110303, end: 20110323
  18. GASMOTIN [Concomitant]
     Dosage: 5 MG, QD
     Route: 048
     Dates: start: 20101220, end: 20101220
  19. PANTOLOC [Concomitant]
     Indication: OESOPHAGITIS
     Dosage: 40 MG, QD
     Route: 042
     Dates: start: 20101204, end: 20101211
  20. PANTOLOC [Concomitant]
     Dosage: 40 MG, QD
     Route: 042
     Dates: start: 20110215
  21. BROMEL [Concomitant]
     Indication: SURGERY
     Dosage: 2.2 ML, BID
     Route: 042
     Dates: start: 20101215, end: 20101215
  22. PYRIDOSTIGMINE BROMIDE [Concomitant]
     Indication: SURGERY
     Dosage: 20 MG, QD
     Route: 042
     Dates: start: 20101215, end: 20101215
  23. PETHIDINE HCL [Concomitant]
     Indication: ABDOMINAL PAIN
     Dosage: 50 MG, BID
     Route: 042
     Dates: start: 20110129, end: 20110129
  24. DUPHALAC [Concomitant]
     Indication: PROPHYLAXIS
     Dosage: 30 ML, BID
     Route: 050
     Dates: start: 20110130
  25. SORAFENIB (RAF KINASE INHIBITOR) [Suspect]
     Dosage: 400 MG, BID
     Route: 048
     Dates: start: 20110128, end: 20110128
  26. ALBIS [Concomitant]
     Indication: GASTRITIS
     Dosage: 1 DF, QD
     Route: 048
     Dates: start: 20101217, end: 20101217
  27. ALBIS [Concomitant]
     Dosage: 50 MG, QD
     Route: 042
     Dates: start: 20110215, end: 20110215
  28. LEVOVIR [Concomitant]
     Dosage: 30 MG, QD
     Route: 048
     Dates: start: 20101217, end: 20101219
  29. FOY [Concomitant]
     Indication: SURGERY
     Dosage: 1500 MG, QD
     Route: 042
     Dates: start: 20101214, end: 20101214
  30. VITAMIN K1 [Concomitant]
     Dosage: 10 MG, QD
     Route: 030
     Dates: start: 20101216, end: 20101216
  31. BROMEL [Concomitant]
     Dosage: 2.2 ML, TID
     Route: 042
     Dates: start: 20101216, end: 20101216
  32. GLAMIN [Concomitant]
     Indication: MEDICAL DIET
     Dosage: 500 ML, QD
     Route: 042
     Dates: start: 20101216, end: 20101216
  33. LIVACT [AMINO ACIDS NOS] [Concomitant]
     Dosage: 4.15 G, BID
     Route: 048
     Dates: start: 20110127, end: 20110128
  34. NORVASC [Concomitant]
     Indication: HYPERTENSION
     Dosage: 5 MG, QD
     Route: 048
     Dates: start: 20110103, end: 20110104
  35. NORVASC [Concomitant]
     Dosage: 5 MG, QD
     Route: 048
     Dates: start: 20110113, end: 20110128
  36. MEK INHIBITOR (DIHYDROXYPROP-DIFLU-METHOXYPHEN-CYCLOPROPA-SULFAMI) [Suspect]
     Dosage: 50 MG, BID
     Route: 048
     Dates: start: 20110225, end: 20110302
  37. MEK INHIBITOR (DIHYDROXYPROP-DIFLU-METHOXYPHEN-CYCLOPROPA-SULFAMI) [Suspect]
     Dosage: 50/30 MG, QD
     Route: 048
     Dates: start: 20110303, end: 20110303
  38. MEK INHIBITOR (DIHYDROXYPROP-DIFLU-METHOXYPHEN-CYCLOPROPA-SULFAMI) [Suspect]
     Dosage: 30 MG, BID
     Dates: start: 20110304, end: 20110324
  39. SORAFENIB (RAF KINASE INHIBITOR) [Suspect]
     Indication: HEPATIC NEOPLASM MALIGNANT
     Dosage: 200 MG, QD
     Route: 048
     Dates: start: 20101230, end: 20101230
  40. SORAFENIB (RAF KINASE INHIBITOR) [Suspect]
     Dosage: 200 MG, QD
     Route: 048
     Dates: start: 20110103, end: 20110103
  41. SORAFENIB (RAF KINASE INHIBITOR) [Suspect]
     Dosage: 400 MG, QD
     Route: 048
     Dates: start: 20110106, end: 20110110
  42. SORAFENIB (RAF KINASE INHIBITOR) [Suspect]
     Dosage: 400 MG, BID
     Route: 048
     Dates: start: 20110225, end: 20110302
  43. ALBIS [Concomitant]
     Indication: OESOPHAGITIS
     Dosage: 1 DF, BID
     Route: 048
     Dates: start: 20101207, end: 20101214
  44. TRAMACET [PARACETAMOL,TRAMADOL] [Concomitant]
     Indication: ABDOMINAL PAIN
     Dosage: 37.5 MG, TID
     Route: 048
     Dates: start: 20101207, end: 20101214
  45. ADELAVIN [Concomitant]
     Indication: SURGERY
     Dosage: 2 ML, QD
     Route: 042
     Dates: start: 20101215, end: 20101216
  46. BOTROPASE [Concomitant]
     Indication: SURGERY
     Dosage: 2 ML, BID
     Route: 042
     Dates: start: 20101215, end: 20101215
  47. ACETYLCYSTEINE [Concomitant]
     Dosage: 200 MG, TID
     Route: 048
     Dates: start: 20101221, end: 20101229
  48. ALLEGRA [Concomitant]
     Indication: PALMAR-PLANTAR ERYTHRODYSAESTHESIA SYNDROME
     Dosage: 120 MG, BID
     Route: 048
     Dates: start: 20110113, end: 20110128
  49. MEK INHIBITOR (DIHYDROXYPROP-DIFLU-METHOXYPHEN-CYCLOPROPA-SULFAMI) [Suspect]
     Indication: HEPATIC NEOPLASM MALIGNANT
     Dosage: 50 MG, QD
     Route: 048
     Dates: start: 20101230, end: 20101230
  50. SORAFENIB (RAF KINASE INHIBITOR) [Suspect]
     Dosage: 200 MG, QD
     Route: 048
     Dates: start: 20110111, end: 20110111
  51. ALBIS [Concomitant]
     Dosage: 1 DF, BID
     Route: 048
     Dates: start: 20101218, end: 20101219
  52. GASMOTIN [Concomitant]
     Indication: OESOPHAGITIS
     Dosage: 5 MG, TID
     Route: 048
     Dates: start: 20101207, end: 20101214
  53. LEVOVIR [Concomitant]
     Dosage: 30 MG, QD
     Route: 048
     Dates: start: 20101221, end: 20110128
  54. FENTANYL CITRATE [Concomitant]
     Indication: SURGERY
     Dosage: 0.1 MG, QD
     Route: 042
     Dates: start: 20101215, end: 20101215
  55. BOTROPASE [Concomitant]
     Dosage: 2 ML, BID
     Route: 042
     Dates: start: 20110129, end: 20110129
  56. LIDOCAINE [Concomitant]
     Indication: SURGERY
     Dosage: UNK UNK, QD
     Route: 061
     Dates: start: 20101215, end: 20101215
  57. GLYCOPYRROLATE [Concomitant]
     Indication: SURGERY
     Dosage: 0.4 MG, QD
     Route: 042
     Dates: start: 20101215, end: 20101215
  58. ACETYLCYSTEINE [Concomitant]
     Dosage: 200 MG, TID
     Route: 048
     Dates: start: 20101218, end: 20101219
  59. ACETYLCYSTEINE [Concomitant]
     Indication: PROPHYLAXIS
     Dosage: 200 MG, QD
     Route: 048
     Dates: start: 20101220, end: 20101220
  60. PRIMOVIST [Concomitant]
     Indication: NUCLEAR MAGNETIC RESONANCE IMAGING
     Dosage: 10 CC, QD
     Route: 042
     Dates: start: 20101213, end: 20101213
  61. TRAMADOL [Concomitant]
     Dosage: 50 MG, BID
     Route: 030
     Dates: start: 20110130
  62. LIVACT [AMINO ACIDS NOS] [Concomitant]
     Indication: PROPHYLAXIS
     Dosage: 4.15 G, TID
     Route: 048
     Dates: start: 20101230, end: 20110105
  63. SILYMARIN [Concomitant]
     Indication: MEDICAL DIET
     Dosage: 500 ML, QD
     Route: 042
     Dates: start: 20110130
  64. ACTIQ [Concomitant]
     Indication: ABDOMINAL PAIN
     Dosage: 0.2 MG, TID
     Route: 048
     Dates: start: 20110224, end: 20110227
  65. SORAFENIB (RAF KINASE INHIBITOR) [Suspect]
     Dosage: 600 MG (200 MG/400 MG), QD
     Route: 048
     Dates: start: 20101231, end: 20110102
  66. SORAFENIB (RAF KINASE INHIBITOR) [Suspect]
     Dosage: 400 MG, QD
     Route: 048
     Dates: start: 20110113, end: 20110127
  67. SORAFENIB (RAF KINASE INHIBITOR) [Suspect]
     Dosage: 400 MG, QD
     Route: 048
     Dates: start: 20110224, end: 20110224
  68. GASMOTIN [Concomitant]
     Dosage: 5 MG, BID
     Route: 048
     Dates: start: 20110127, end: 20110128
  69. TRAMACET [PARACETAMOL,TRAMADOL] [Concomitant]
     Dosage: 37.5 MG, BID
     Route: 048
     Dates: start: 20101217, end: 20101217
  70. PANTOLOC [Concomitant]
     Indication: GASTRITIS
     Dosage: 40 MG, QD
     Route: 042
     Dates: start: 20101213, end: 20101214
  71. LAMINA-G [Concomitant]
     Dosage: 50 ML, QD
     Route: 048
     Dates: start: 20101220, end: 20101220
  72. LAMINA-G [Concomitant]
     Dosage: 50 ML, TID
     Route: 048
     Dates: start: 20101221, end: 20101223
  73. DURAGESIC-100 [Concomitant]
     Indication: ABDOMINAL PAIN
     Dosage: 12.5 ?G, QD
     Dates: start: 20101213, end: 20101213
  74. DURAGESIC-100 [Concomitant]
     Dosage: 25 ?G, BIW
     Dates: start: 20101221, end: 20101223
  75. VALIUM [Concomitant]
     Indication: SURGERY
     Dosage: 5 MG, QD
     Route: 048
     Dates: start: 20101214, end: 20101214
  76. GASTER [Concomitant]
     Indication: SURGERY
     Dosage: 20 MG, BID
     Route: 042
     Dates: start: 20101215, end: 20101216
  77. ACETYLCYSTEINE [Concomitant]
     Dosage: 2 ML, TID
     Route: 042
     Dates: start: 20101216, end: 20101216
  78. BOTROPASE [Concomitant]
     Dosage: 2 ML, UNK
     Route: 042
     Dates: start: 20110130
  79. KETORACIN [Concomitant]
     Indication: ABDOMINAL PAIN
     Dosage: 30 MG, QD
     Route: 042
     Dates: start: 20101215, end: 20101216
  80. ULTRAVIST 150 [Concomitant]
     Dosage: 140 ML, QD
     Route: 042
     Dates: start: 20110129, end: 20110129
  81. ULTRAVIST 150 [Concomitant]
     Dosage: 140 ML, UNK
     Route: 042
     Dates: start: 20110201, end: 20110201
  82. SMECTA [SMECTITE] [Concomitant]
     Indication: PROPHYLAXIS
     Dosage: 20 ML, BID
     Route: 048
     Dates: start: 20101230, end: 20110112
  83. NORMIX [Concomitant]
     Indication: PROPHYLAXIS
     Dosage: 400 MG, BID
     Route: 050
     Dates: start: 20110130
  84. PENNEL [Concomitant]
     Indication: ASPARTATE AMINOTRANSFERASE INCREASED
     Dosage: 1 DF, TID
     Route: 048
     Dates: start: 20110302
  85. MEK INHIBITOR (DIHYDROXYPROP-DIFLU-METHOXYPHEN-CYCLOPROPA-SULFAMI) [Suspect]
     Dosage: 50 MG, QD
     Route: 048
     Dates: start: 20110224, end: 20110224
  86. ALBIS [Concomitant]
     Dosage: 1 DF, BID
     Route: 048
     Dates: start: 20101221, end: 20110128
  87. GASMOTIN [Concomitant]
     Dosage: 5 MG, TID
     Route: 048
     Dates: start: 20101218, end: 20101219
  88. GASMOTIN [Concomitant]
     Dosage: 5 MG, TID
     Route: 048
     Dates: start: 20110106, end: 20110126
  89. TRAMACET [PARACETAMOL,TRAMADOL] [Concomitant]
     Dosage: 37.5 MG, TID
     Route: 048
     Dates: start: 20101218, end: 20101219
  90. MULTI-VITAMINS [Concomitant]
     Indication: MEDICAL DIET
     Dosage: 1 DF, QD
     Route: 048
     Dates: start: 20101207, end: 20101214
  91. PANTOLOC [Concomitant]
     Dosage: 40 MG, QD
     Route: 042
     Dates: start: 20110129
  92. METOCLOPRAMIDE HCL [Concomitant]
     Indication: OESOPHAGITIS
     Dosage: 10 MG, QD
     Route: 042
     Dates: start: 20101214, end: 20101214
  93. VITAMIN K1 [Concomitant]
     Indication: SURGERY
     Dosage: 10 MG, BID
     Route: 030
     Dates: start: 20101215, end: 20101215
  94. ACETYLCYSTEINE [Concomitant]
     Indication: SURGERY
     Dosage: 2 ML, BID
     Route: 042
     Dates: start: 20101215, end: 20101215
  95. LIDOCAINE [Concomitant]
     Dosage: UNK UNK, QD
     Route: 058
     Dates: start: 20110129, end: 20110129
  96. TRAMADOL [Concomitant]
     Indication: ABDOMINAL PAIN
     Dosage: 50 MG, TID
     Route: 042
     Dates: start: 20101220, end: 20101220
  97. TRAMADOL [Concomitant]
     Dosage: 50 MG, QD
     Route: 030
     Dates: start: 20110129, end: 20110129
  98. ULTRAVIST 150 [Concomitant]
     Indication: NUCLEAR MAGNETIC RESONANCE IMAGING
     Dosage: 140 ML, QD
     Route: 042
     Dates: start: 20101221, end: 20101221
  99. ADALAT [Concomitant]
     Indication: HYPERTENSION
     Dosage: 60 MG, QD
     Route: 048
     Dates: start: 20110130
  100. NALOXONE [Concomitant]
     Indication: MUSCULAR WEAKNESS
     Dosage: 0.2 MG, QD
     Route: 042
     Dates: start: 20110227, end: 20110227
  101. MEK INHIBITOR (DIHYDROXYPROP-DIFLU-METHOXYPHEN-CYCLOPROPA-SULFAMI) [Suspect]
     Dosage: 30 MG, QD
     Dates: start: 20110304, end: 20110324
  102. GASMOTIN [Concomitant]
     Dosage: 5 MG, BID
     Route: 048
     Dates: start: 20101217, end: 20101217
  103. MULTI-VITAMINS [Concomitant]
     Dosage: 1 DF, QD
     Route: 048
     Dates: start: 20101217, end: 20101219
  104. PANTOLOC [Concomitant]
     Dosage: 20 MG, QD
     Route: 042
     Dates: start: 20110113, end: 20110128
  105. CASTOR OIL [Concomitant]
     Indication: SURGERY
     Dosage: 50 ML, QD
     Route: 048
     Dates: start: 20101214, end: 20101214
  106. MEICELIN [Concomitant]
     Indication: SURGERY
     Dosage: 1 G, TID
     Route: 042
     Dates: start: 20101215, end: 20101216
  107. ORNITHINE ASPARTATE [Concomitant]
     Indication: SURGERY
     Dosage: 20 ML, QD
     Route: 042
     Dates: start: 20101215, end: 20101216
  108. PROPOFOL [Concomitant]
     Indication: SURGERY
     Dosage: 120 MG, QD
     Route: 042
     Dates: start: 20101215, end: 20101215
  109. PROPOFOL [Concomitant]
     Indication: ENDOSCOPY
     Dosage: 80 MG, QD
     Route: 042
     Dates: start: 20110208, end: 20110208
  110. CEFOTAXIME [Concomitant]
     Indication: SURGERY
     Dosage: 1 G, BID
     Route: 042
     Dates: start: 20101217, end: 20101217
  111. CEFOTAXIME [Concomitant]
     Dosage: 1 G, QD
     Route: 042
     Dates: start: 20101218, end: 20101218
  112. CEFOTAXIME [Concomitant]
     Dosage: 2 G, TID
     Route: 042
     Dates: start: 20101218, end: 20101221
  113. LIVACT [AMINO ACIDS NOS] [Concomitant]
     Dosage: 4.15 G, BID
     Route: 048
     Dates: start: 20110106, end: 20110112
  114. ADALAT [Concomitant]
     Dosage: 30 MG, QD
     Route: 048
     Dates: start: 20110131
  115. LASIX [Concomitant]
     Indication: HYPOALBUMINAEMIA
     Dosage: 1 ML, QD
     Route: 042
     Dates: start: 20110129, end: 20110129
  116. MORPHINE SULFATE [Concomitant]
     Dosage: 5 MG, QD
     Route: 042
     Dates: start: 20110215
  117. ACTIQ [Concomitant]
     Dosage: 0.2 MG, QD
     Route: 048
     Dates: start: 20110228

REACTIONS (5)
  - LIVER CARCINOMA RUPTURED [None]
  - HYPOKALAEMIA [None]
  - ASPARTATE AMINOTRANSFERASE INCREASED [None]
  - DIARRHOEA [None]
  - ABDOMINAL PAIN [None]
